FAERS Safety Report 9254883 (Version 2)
Quarter: 2013Q3

REPORT INFORMATION
  Report Type: Spontaneous
  Country: US (occurrence: None)
  Receive Date: 20130418
  Receipt Date: 20130719
  Transmission Date: 20140515
  Serious: Yes (Other)
  Sender: FDA-Public Use
  Company Number: M-13-009

PATIENT
  Sex: Female

DRUGS (5)
  1. LEVOTHYROXINE SODIUM [Suspect]
     Indication: THYROID DISORDER
     Dates: start: 201212, end: 20130403
  2. CALTRATE [Concomitant]
  3. CENTRUM SILVER [Concomitant]
  4. ESTER C [Concomitant]
  5. ALENDRONATE [Concomitant]

REACTIONS (5)
  - Rash pruritic [None]
  - Rash erythematous [None]
  - Rash papular [None]
  - Rash generalised [None]
  - Pain [None]
